FAERS Safety Report 4424935-9 (Version None)
Quarter: 2004Q3

REPORT INFORMATION
  Report Type: 
  Country: None (occurrence: None)
  Receive Date: 20040812
  Receipt Date: 20040720
  Transmission Date: 20050211
  Serious: Yes (Death)
  Sender: FDA-Public Use
  Company Number: AU-MERCK-0407AUS00105

PATIENT
  Age: 59 Year
  Sex: Female

DRUGS (11)
  1. AMIKACIN [Concomitant]
     Indication: ENTEROBACTER INFECTION
     Route: 042
     Dates: start: 20040705, end: 20040714
  2. CHLORAMPHENICOL [Suspect]
     Route: 042
     Dates: start: 20040715, end: 20040715
  3. EDECRIN [Suspect]
     Indication: DRUG HYPERSENSITIVITY
     Route: 042
     Dates: start: 20040715, end: 20040717
  4. EDECRIN [Suspect]
     Route: 048
     Dates: start: 20040713, end: 20040714
  5. FUROSEMIDE [Concomitant]
     Route: 065
  6. FUROSEMIDE [Concomitant]
     Route: 065
     Dates: end: 20040716
  7. MEROPENEM [Concomitant]
     Indication: INFECTION
     Route: 042
     Dates: start: 20040705, end: 20040714
  8. MOXIFLOXACIN HYDROCHLORIDE [Suspect]
     Route: 042
     Dates: start: 20040715, end: 20040715
  9. OMEPRAZOLE [Concomitant]
     Indication: GASTROOESOPHAGEAL REFLUX DISEASE
     Route: 048
     Dates: start: 20040628, end: 20040716
  10. SPIRONOLACTONE [Concomitant]
     Indication: ALCOHOLIC LIVER DISEASE
     Route: 048
     Dates: start: 20040628, end: 20040716
  11. THIAMINE [Concomitant]
     Indication: ALCOHOLIC LIVER DISEASE
     Route: 042
     Dates: start: 20040624, end: 20040714

REACTIONS (6)
  - DEATH [None]
  - DERMATITIS EXFOLIATIVE [None]
  - FLUSHING [None]
  - HYPOTENSION [None]
  - LOCAL SWELLING [None]
  - RASH MACULAR [None]
